FAERS Safety Report 11404523 (Version 2)
Quarter: 2015Q3

REPORT INFORMATION
  Report Type: Report from Study
  Country: US (occurrence: US)
  Receive Date: 20150821
  Receipt Date: 20150915
  Transmission Date: 20151125
  Serious: Yes (Other)
  Sender: FDA-Public Use
  Company Number: US-AMGEN-USASP2015078402

PATIENT
  Age: 16 Year
  Sex: Male

DRUGS (1)
  1. ENBREL [Suspect]
     Active Substance: ETANERCEPT
     Indication: JUVENILE IDIOPATHIC ARTHRITIS
     Dosage: 50 MG, QWK
     Route: 065
     Dates: start: 20141220

REACTIONS (5)
  - Foot deformity [Unknown]
  - Pain in extremity [Recovering/Resolving]
  - Neck pain [Unknown]
  - Arthrodesis [Unknown]
  - Headache [Unknown]

NARRATIVE: CASE EVENT DATE: 2015
